FAERS Safety Report 8511292-1 (Version None)
Quarter: 2012Q3

REPORT INFORMATION
  Report Type: 
  Country: None (occurrence: None)
  Receive Date: 20120716
  Receipt Date: 20120705
  Transmission Date: 20120928
  Serious: Yes (Other)
  Sender: FDA-Public Use
  Company Number: FI-ELI_LILLY_AND_COMPANY-FI201207002384

PATIENT
  Sex: Female

DRUGS (12)
  1. PREDNISOLONE [Concomitant]
  2. PANACOD [Concomitant]
  3. IMOVANE [Concomitant]
  4. TREXAN                                  /EST/ [Concomitant]
  5. OXIKLORIN [Concomitant]
  6. NEXIUM [Concomitant]
  7. LITALGIN                           /00320201/ [Concomitant]
  8. FORTEO [Suspect]
     Indication: OSTEOPOROSIS
     Dosage: 20 UG, QD
     Route: 058
     Dates: start: 20110304
  9. ZANTAC [Concomitant]
  10. IBUPROFEN [Concomitant]
  11. TRAMADOL HYDROCHLORIDE [Concomitant]
  12. CALCIUM + VITAMIN D [Concomitant]

REACTIONS (2)
  - PULMONARY EMBOLISM [None]
  - HERPES ZOSTER [None]
